FAERS Safety Report 5476914-0 (Version None)
Quarter: 2007Q3

REPORT INFORMATION
  Report Type: 
  Country: None (occurrence: None)
  Receive Date: 20070912
  Receipt Date: 20070806
  Transmission Date: 20080115
  Serious: No
  Sender: FDA-Public Use
  Company Number: 002#2#2007-00130

PATIENT
  Sex: Female

DRUGS (3)
  1. NEUPRO [Suspect]
     Indication: DRUG USE FOR UNKNOWN INDICATION
     Dosage: 2MG/24H,1 IN 1 D, TRANSDERMAL
     Route: 062
     Dates: start: 20070101, end: 20070804
  2. ATIVAN [Concomitant]
  3. VALIUM [Concomitant]

REACTIONS (4)
  - FEELING ABNORMAL [None]
  - NAUSEA [None]
  - NECK PAIN [None]
  - RESTLESSNESS [None]
